FAERS Safety Report 4657409-0 (Version None)
Quarter: 2005Q2

REPORT INFORMATION
  Report Type: 
  Country: None (occurrence: None)
  Receive Date: 20050510
  Receipt Date: 20050429
  Transmission Date: 20051028
  Serious: Yes (Other)
  Sender: FDA-Public Use
  Company Number: US-JNJFOC-20050500189

PATIENT
  Sex: Female
  Weight: 81.65 kg

DRUGS (10)
  1. REMICADE [Suspect]
     Indication: CROHN'S DISEASE
     Dosage: TREATED FOR THE PAST SIX YEARS; HAD ABOUT 13 INFUSIONS (EPISODIC TREATMENT)
     Route: 042
  2. IMURAN [Concomitant]
  3. AZATHIOPRINE [Concomitant]
  4. COLESTID [Concomitant]
  5. PREMARIN [Concomitant]
  6. PREVACID [Concomitant]
  7. INDURAL [Concomitant]
  8. ASPIRIN [Concomitant]
  9. CALCIUM GLUCONATE [Concomitant]
  10. LOMOTIL [Concomitant]

REACTIONS (2)
  - ACUTE LEUKAEMIA [None]
  - SINUSITIS [None]
